FAERS Safety Report 7658352-5 (Version None)
Quarter: 2011Q3

REPORT INFORMATION
  Report Type: 
  Country: None (occurrence: None)
  Receive Date: 20110802
  Receipt Date: 20110725
  Transmission Date: 20111222
  Serious: Yes (Death, Hospitalization)
  Sender: FDA-Public Use
  Company Number: SEL-11-03

PATIENT
  Age: 44 Year
  Sex: Male

DRUGS (4)
  1. PRAMIPEXOLE DIHYDROCHLORIDE [Concomitant]
  2. SELEGILINE [Suspect]
     Indication: PARKINSON'S DISEASE
     Dosage: 2.5MG/DAY
  3. AMANTADINE HCL [Concomitant]
  4. LEVODOPA [Concomitant]

REACTIONS (4)
  - GAMBLING [None]
  - TREATMENT NONCOMPLIANCE [None]
  - ABNORMAL BEHAVIOUR [None]
  - IMPULSE-CONTROL DISORDER [None]
